FAERS Safety Report 4635464-1 (Version None)
Quarter: 2005Q2

REPORT INFORMATION
  Report Type: 
  Country: None (occurrence: None)
  Receive Date: 20050413
  Receipt Date: 20050401
  Transmission Date: 20051028
  Serious: Yes (Hospitalization, Other)
  Sender: FDA-Public Use
  Company Number: 2005053862

PATIENT
  Age: 16 Month
  Sex: Male
  Weight: 9.9791 kg

DRUGS (1)
  1. AZITHROMYCIN [Suspect]
     Indication: BRONCHITIS
     Dosage: 2.5 ML (2.5 ML, QD INTERVAL: EVERY DAY), ORAL
     Route: 048
     Dates: start: 20050301

REACTIONS (4)
  - ASTHENIA [None]
  - BLOOD ALBUMIN DECREASED [None]
  - GENERALISED OEDEMA [None]
  - NEPHROTIC SYNDROME [None]
